FAERS Safety Report 22139437 (Version 1)
Quarter: 2023Q1

REPORT INFORMATION
  Report Type: Report from Study
  Country: US (occurrence: US)
  Receive Date: 20230327
  Receipt Date: 20230327
  Transmission Date: 20230418
  Serious: Yes (Other)
  Sender: FDA-Public Use
  Company Number: US-ABBVIE-4703062

PATIENT
  Age: 67 Year
  Sex: Male

DRUGS (1)
  1. HUMIRA [Suspect]
     Active Substance: ADALIMUMAB
     Indication: Psoriatic arthropathy
     Route: 058
     Dates: start: 20210527

REACTIONS (8)
  - Swelling face [Recovering/Resolving]
  - Lupus-like syndrome [Recovering/Resolving]
  - COVID-19 [Recovering/Resolving]
  - Injection site pain [Unknown]
  - Nasal ulcer [Unknown]
  - Liver function test increased [Unknown]
  - Glycosylated haemoglobin decreased [Unknown]
  - Weight decreased [Unknown]

NARRATIVE: CASE EVENT DATE: 20230207
